FAERS Safety Report 10945049 (Version 1)
Quarter: 2015Q1

REPORT INFORMATION
  Report Type: Spontaneous
  Country: US (occurrence: None)
  Receive Date: 20150212
  Receipt Date: 20150212
  Transmission Date: 20150721
  Serious: No
  Sender: FDA-Public Use
  Company Number: TPA2011A00566

PATIENT
  Age: 6 Decade
  Sex: Male

DRUGS (4)
  1. UNKNOWN DIABETIC MEDS (ANTI-DIABETICS) [Concomitant]
  2. UNKNOWN HIGH BLOOD PRESSURE MEDS (ANTIHYPERTENSIVES) [Concomitant]
  3. ULORIC [Suspect]
     Active Substance: FEBUXOSTAT
     Route: 048
  4. UNKNOWN PROSTATE MEDS (ALL OTHER THERAPEUTIC PRODUCTS) [Concomitant]

REACTIONS (1)
  - Nightmare [None]
